FAERS Safety Report 20918813 (Version 1)
Quarter: 2022Q2

REPORT INFORMATION
  Report Type: Spontaneous
  Country: US (occurrence: US)
  Receive Date: 20220606
  Receipt Date: 20220606
  Transmission Date: 20220720
  Serious: No
  Sender: FDA-Public Use
  Company Number: US-drreddys-SPO/USA/22/0150628

PATIENT
  Age: 56 Year

DRUGS (1)
  1. ZENATANE [Suspect]
     Active Substance: ISOTRETINOIN
     Indication: Product used for unknown indication
     Dosage: RMA ISSUE DATE: 21 FEBRUARY 2022 04:03:59 PM, 23 MARCH 2022 10:12:03 AM AND 25 APRIL 2022 06:01:27 P

REACTIONS (2)
  - Drug ineffective [Unknown]
  - Product quality issue [Unknown]
